FAERS Safety Report 16348186 (Version 3)
Quarter: 2019Q2

REPORT INFORMATION
  Report Type: Report from Study
  Country: FR (occurrence: FR)
  Receive Date: 20190523
  Receipt Date: 20190606
  Transmission Date: 20190711
  Serious: Yes (Other)
  Sender: FDA-Public Use
  Company Number: FR-PFIZER INC-2019213759

PATIENT
  Age: 38 Year
  Sex: Male

DRUGS (7)
  1. BEDAQUILINE [Concomitant]
     Active Substance: BEDAQUILINE
     Indication: TUBERCULOSIS
     Dosage: UNK
  2. AMOXICILLIN/CLAVULANIC ACID [Concomitant]
     Active Substance: AMOXICILLIN\CLAVULANIC ACID
     Indication: TUBERCULOSIS
     Dosage: UNK
  3. AMINOSALICYLIC ACID [Concomitant]
     Active Substance: AMINOSALICYLIC ACID
     Indication: TUBERCULOSIS
     Dosage: UNK
  4. LINEZOLID. [Suspect]
     Active Substance: LINEZOLID
     Dosage: 600 MG, 1X/DAY
     Route: 048
  5. LINEZOLID. [Suspect]
     Active Substance: LINEZOLID
     Indication: TUBERCULOSIS
     Dosage: SUBSEQUENTLY ADAPTED ACCORDING TO BLOOD CONCENTRATIONS
     Route: 048
  6. CYCLOSERINE. [Concomitant]
     Active Substance: CYCLOSERINE
     Indication: TUBERCULOSIS
     Dosage: UNK
  7. CILASTATIN/IMIPENEM [Concomitant]
     Indication: TUBERCULOSIS
     Dosage: UNK

REACTIONS (6)
  - Dysphagia [Unknown]
  - Myositis [Unknown]
  - Neuropathy peripheral [Unknown]
  - Myoclonus [Unknown]
  - Neurotoxicity [Unknown]
  - Psychotic disorder [Unknown]
